FAERS Safety Report 6358518-0 (Version None)
Quarter: 2009Q3

REPORT INFORMATION
  Report Type: 
  Country: None (occurrence: None)
  Receive Date: 20090916
  Receipt Date: 20090908
  Transmission Date: 20100115
  Serious: Yes (Hospitalization)
  Sender: FDA-Public Use
  Company Number: JP-AMGEN-US356318

PATIENT
  Sex: Male
  Weight: 67 kg

DRUGS (10)
  1. ENBREL [Suspect]
     Indication: RHEUMATOID ARTHRITIS
     Dosage: PREFILLED SYRINGE; 25 MG X2/WEEK
     Route: 058
     Dates: start: 20070801, end: 20090530
  2. METHOTREXATE [Suspect]
     Indication: RHEUMATOID ARTHRITIS
     Route: 048
     Dates: start: 20060101
  3. METHOTREXATE [Suspect]
     Route: 048
     Dates: end: 20090530
  4. AZULFIDINE [Concomitant]
     Indication: RHEUMATOID ARTHRITIS
     Route: 048
     Dates: start: 20060101, end: 20090501
  5. MUCOSTA [Concomitant]
     Indication: PROPHYLAXIS
     Route: 048
  6. HYPEN [Concomitant]
     Indication: RHEUMATOID ARTHRITIS
     Route: 048
  7. FOLIAMIN [Concomitant]
     Indication: PROPHYLAXIS
     Route: 048
  8. PREDNISOLONE [Concomitant]
     Indication: RHEUMATOID ARTHRITIS
     Route: 048
     Dates: end: 20090404
  9. PREDNISOLONE [Concomitant]
     Route: 048
     Dates: start: 20090405, end: 20090502
  10. PREDNISOLONE [Concomitant]
     Route: 048
     Dates: start: 20090503

REACTIONS (1)
  - ORGANISING PNEUMONIA [None]
